FAERS Safety Report 4944282-6 (Version None)
Quarter: 2006Q1

REPORT INFORMATION
  Report Type: 
  Country: None (occurrence: None)
  Receive Date: 20060315
  Receipt Date: 20051221
  Transmission Date: 20060701
  Serious: Yes (Other)
  Sender: FDA-Public Use
  Company Number: ES-GLAXOSMITHKLINE-B0404454A

PATIENT
  Age: 29 Year
  Sex: Male

DRUGS (2)
  1. TWINRIX [Suspect]
     Indication: PROPHYLAXIS
     Dates: start: 20050101, end: 20050101
  2. MALARONE [Suspect]
     Route: 048
     Dates: start: 20050701, end: 20050701

REACTIONS (3)
  - BLOOD TRIGLYCERIDES INCREASED [None]
  - HEPATIC STEATOSIS [None]
  - HEPATOMEGALY [None]
